FAERS Safety Report 17821484 (Version 2)
Quarter: 2020Q2

REPORT INFORMATION
  Report Type: Report from Study
  Country: IL (occurrence: IL)
  Receive Date: 20200525
  Receipt Date: 20200526
  Transmission Date: 20200714
  Serious: Yes (Other)
  Sender: FDA-Public Use
  Company Number: IL-ASTRAZENECA-2020SE64371

PATIENT
  Age: 85 Year
  Sex: Male

DRUGS (100)
  1. ACALABRUTINIB. [Suspect]
     Active Substance: ACALABRUTINIB
     Indication: MANTLE CELL LYMPHOMA
     Route: 048
     Dates: start: 20180620, end: 20180701
  2. ACALABRUTINIB. [Suspect]
     Active Substance: ACALABRUTINIB
     Indication: MANTLE CELL LYMPHOMA
     Route: 048
     Dates: start: 20190127, end: 20190131
  3. ACALABRUTINIB. [Suspect]
     Active Substance: ACALABRUTINIB
     Indication: MANTLE CELL LYMPHOMA
     Route: 048
     Dates: start: 20190313, end: 20190313
  4. ACALABRUTINIB. [Suspect]
     Active Substance: ACALABRUTINIB
     Indication: MANTLE CELL LYMPHOMA
     Route: 048
     Dates: start: 20190423, end: 20190518
  5. ACALABRUTINIB. [Suspect]
     Active Substance: ACALABRUTINIB
     Indication: MANTLE CELL LYMPHOMA
     Route: 048
     Dates: start: 20190714, end: 20190808
  6. ACALABRUTINIB. [Suspect]
     Active Substance: ACALABRUTINIB
     Indication: MANTLE CELL LYMPHOMA
     Route: 048
     Dates: start: 20191009, end: 20191009
  7. ACALABRUTINIB. [Suspect]
     Active Substance: ACALABRUTINIB
     Indication: MANTLE CELL LYMPHOMA
     Route: 048
     Dates: start: 20191116, end: 20191116
  8. RITUXIMAB. [Suspect]
     Active Substance: RITUXIMAB
     Indication: MANTLE CELL LYMPHOMA
     Dosage: 600.0MG/M2 ONCE/SINGLE ADMINISTRATION
     Route: 042
     Dates: start: 20190908, end: 20190908
  9. RITUXIMAB. [Suspect]
     Active Substance: RITUXIMAB
     Indication: MANTLE CELL LYMPHOMA
     Dosage: 600.0MG/M2 ONCE/SINGLE ADMINISTRATION
     Route: 042
     Dates: start: 20191103, end: 20191103
  10. RITUXIMAB. [Suspect]
     Active Substance: RITUXIMAB
     Indication: MANTLE CELL LYMPHOMA
     Dosage: 600.0MG/M2 ONCE/SINGLE ADMINISTRATION
     Route: 042
     Dates: start: 20200216, end: 20200216
  11. ACALABRUTINIB. [Suspect]
     Active Substance: ACALABRUTINIB
     Indication: MANTLE CELL LYMPHOMA
     Route: 048
     Dates: start: 20171227, end: 20180122
  12. ACALABRUTINIB. [Suspect]
     Active Substance: ACALABRUTINIB
     Indication: MANTLE CELL LYMPHOMA
     Route: 048
     Dates: start: 20180214, end: 20180214
  13. ACALABRUTINIB. [Suspect]
     Active Substance: ACALABRUTINIB
     Indication: MANTLE CELL LYMPHOMA
     Route: 048
     Dates: start: 20180416, end: 20180429
  14. ACALABRUTINIB. [Suspect]
     Active Substance: ACALABRUTINIB
     Indication: MANTLE CELL LYMPHOMA
     Route: 048
     Dates: start: 20180430, end: 20180430
  15. ACALABRUTINIB. [Suspect]
     Active Substance: ACALABRUTINIB
     Indication: MANTLE CELL LYMPHOMA
     Route: 048
     Dates: start: 20180516, end: 20180516
  16. ACALABRUTINIB. [Suspect]
     Active Substance: ACALABRUTINIB
     Indication: MANTLE CELL LYMPHOMA
     Route: 048
     Dates: start: 20181203, end: 20181208
  17. ACALABRUTINIB. [Suspect]
     Active Substance: ACALABRUTINIB
     Indication: MANTLE CELL LYMPHOMA
     Route: 048
     Dates: start: 20181210, end: 20190103
  18. ACALABRUTINIB. [Suspect]
     Active Substance: ACALABRUTINIB
     Indication: MANTLE CELL LYMPHOMA
     Route: 048
     Dates: start: 20190617, end: 20190713
  19. ACALABRUTINIB. [Suspect]
     Active Substance: ACALABRUTINIB
     Indication: MANTLE CELL LYMPHOMA
     Route: 048
     Dates: start: 20190811, end: 20190813
  20. ACALABRUTINIB. [Suspect]
     Active Substance: ACALABRUTINIB
     Indication: MANTLE CELL LYMPHOMA
     Route: 048
     Dates: start: 20191111, end: 20191115
  21. ACALABRUTINIB. [Suspect]
     Active Substance: ACALABRUTINIB
     Indication: MANTLE CELL LYMPHOMA
     Route: 048
     Dates: start: 20191205, end: 20191205
  22. BENDAMUSTINE [Suspect]
     Active Substance: BENDAMUSTINE
     Indication: MANTLE CELL LYMPHOMA
     Dosage: 140.0MG/M2 ONCE/SINGLE ADMINISTRATION
     Route: 042
     Dates: start: 20171128, end: 20171128
  23. BENDAMUSTINE [Suspect]
     Active Substance: BENDAMUSTINE
     Indication: MANTLE CELL LYMPHOMA
     Dosage: 140.0MG/M2 ONCE/SINGLE ADMINISTRATION
     Route: 042
     Dates: start: 20180416, end: 20180416
  24. ACALABRUTINIB. [Suspect]
     Active Substance: ACALABRUTINIB
     Indication: MANTLE CELL LYMPHOMA
     Route: 048
     Dates: start: 20180221, end: 20180319
  25. ACALABRUTINIB. [Suspect]
     Active Substance: ACALABRUTINIB
     Indication: MANTLE CELL LYMPHOMA
     Route: 048
     Dates: start: 20181007, end: 20181007
  26. ACALABRUTINIB. [Suspect]
     Active Substance: ACALABRUTINIB
     Indication: MANTLE CELL LYMPHOMA
     Route: 048
     Dates: start: 20181124, end: 20181201
  27. ACALABRUTINIB. [Suspect]
     Active Substance: ACALABRUTINIB
     Indication: MANTLE CELL LYMPHOMA
     Route: 048
     Dates: start: 20181209, end: 20181209
  28. ACALABRUTINIB. [Suspect]
     Active Substance: ACALABRUTINIB
     Indication: MANTLE CELL LYMPHOMA
     Route: 048
     Dates: start: 20190314, end: 20190323
  29. ACALABRUTINIB. [Suspect]
     Active Substance: ACALABRUTINIB
     Indication: MANTLE CELL LYMPHOMA
     Route: 048
     Dates: start: 20190815, end: 20190817
  30. ACALABRUTINIB. [Suspect]
     Active Substance: ACALABRUTINIB
     Indication: MANTLE CELL LYMPHOMA
     Route: 048
     Dates: start: 20190907, end: 20190907
  31. ACALABRUTINIB. [Suspect]
     Active Substance: ACALABRUTINIB
     Indication: MANTLE CELL LYMPHOMA
     Route: 048
     Dates: start: 20191104, end: 20191109
  32. ACALABRUTINIB. [Suspect]
     Active Substance: ACALABRUTINIB
     Indication: MANTLE CELL LYMPHOMA
     Route: 048
     Dates: start: 20191110, end: 20191110
  33. BENDAMUSTINE [Suspect]
     Active Substance: BENDAMUSTINE
     Indication: MANTLE CELL LYMPHOMA
     Dosage: 140.0MG/M2 ONCE/SINGLE ADMINISTRATION
     Route: 042
     Dates: start: 20180221, end: 20180221
  34. BENDAMUSTINE [Suspect]
     Active Substance: BENDAMUSTINE
     Indication: MANTLE CELL LYMPHOMA
     Dosage: 140.0MG/M2 ONCE/SINGLE ADMINISTRATION
     Route: 042
     Dates: start: 20180320, end: 20180320
  35. RITUXIMAB. [Suspect]
     Active Substance: RITUXIMAB
     Indication: MANTLE CELL LYMPHOMA
     Dosage: 600.0MG/M2 ONCE/SINGLE ADMINISTRATION
     Route: 042
     Dates: start: 20171226, end: 20171226
  36. RITUXIMAB. [Suspect]
     Active Substance: RITUXIMAB
     Indication: MANTLE CELL LYMPHOMA
     Dosage: 600.0MG/M2 ONCE/SINGLE ADMINISTRATION
     Route: 042
     Dates: start: 20180123, end: 20180123
  37. RITUXIMAB. [Suspect]
     Active Substance: RITUXIMAB
     Indication: MANTLE CELL LYMPHOMA
     Dosage: 600.0MG/M2 ONCE/SINGLE ADMINISTRATION
     Route: 042
     Dates: start: 20180320, end: 20180320
  38. RITUXIMAB. [Suspect]
     Active Substance: RITUXIMAB
     Indication: MANTLE CELL LYMPHOMA
     Dosage: 600.0MG/M2 ONCE/SINGLE ADMINISTRATION
     Route: 042
     Dates: start: 20190324, end: 20190324
  39. ACALABRUTINIB. [Suspect]
     Active Substance: ACALABRUTINIB
     Indication: MANTLE CELL LYMPHOMA
     Route: 048
     Dates: start: 20171128, end: 20171209
  40. ACALABRUTINIB. [Suspect]
     Active Substance: ACALABRUTINIB
     Indication: MANTLE CELL LYMPHOMA
     Route: 048
     Dates: start: 20180517, end: 20180607
  41. ACALABRUTINIB. [Suspect]
     Active Substance: ACALABRUTINIB
     Indication: MANTLE CELL LYMPHOMA
     Route: 048
     Dates: start: 20181010, end: 20181104
  42. ACALABRUTINIB. [Suspect]
     Active Substance: ACALABRUTINIB
     Indication: MANTLE CELL LYMPHOMA
     Route: 048
     Dates: start: 20181105, end: 20181122
  43. ACALABRUTINIB. [Suspect]
     Active Substance: ACALABRUTINIB
     Indication: MANTLE CELL LYMPHOMA
     Route: 048
     Dates: start: 20190209, end: 20190213
  44. ACALABRUTINIB. [Suspect]
     Active Substance: ACALABRUTINIB
     Indication: MANTLE CELL LYMPHOMA
     Route: 048
     Dates: start: 20190228, end: 20190312
  45. ACALABRUTINIB. [Suspect]
     Active Substance: ACALABRUTINIB
     Indication: MANTLE CELL LYMPHOMA
     Route: 048
     Dates: start: 20190814, end: 20190814
  46. ACALABRUTINIB. [Suspect]
     Active Substance: ACALABRUTINIB
     Indication: MANTLE CELL LYMPHOMA
     Route: 048
     Dates: start: 20190818, end: 20190818
  47. BENDAMUSTINE [Suspect]
     Active Substance: BENDAMUSTINE
     Indication: MANTLE CELL LYMPHOMA
     Dosage: 140.0MG/M2 ONCE/SINGLE ADMINISTRATION
     Route: 042
     Dates: start: 20171227, end: 20171227
  48. RITUXIMAB. [Suspect]
     Active Substance: RITUXIMAB
     Indication: MANTLE CELL LYMPHOMA
     Dosage: 600.0MG/M2 ONCE/SINGLE ADMINISTRATION
     Route: 042
     Dates: start: 20180416, end: 20180416
  49. RITUXIMAB. [Suspect]
     Active Substance: RITUXIMAB
     Indication: MANTLE CELL LYMPHOMA
     Dosage: 600.0MG/M2 ONCE/SINGLE ADMINISTRATION
     Route: 042
     Dates: start: 20180812, end: 20180812
  50. RITUXIMAB. [Suspect]
     Active Substance: RITUXIMAB
     Indication: MANTLE CELL LYMPHOMA
     Dosage: 600.0MG/M2 ONCE/SINGLE ADMINISTRATION
     Route: 042
     Dates: start: 20190127, end: 20190127
  51. ACALABRUTINIB. [Suspect]
     Active Substance: ACALABRUTINIB
     Indication: MANTLE CELL LYMPHOMA
     Route: 048
     Dates: start: 20171210, end: 20171210
  52. ACALABRUTINIB. [Suspect]
     Active Substance: ACALABRUTINIB
     Indication: MANTLE CELL LYMPHOMA
     Route: 048
     Dates: start: 20171211, end: 20171226
  53. ACALABRUTINIB. [Suspect]
     Active Substance: ACALABRUTINIB
     Indication: MANTLE CELL LYMPHOMA
     Route: 048
     Dates: start: 20180215, end: 20180220
  54. ACALABRUTINIB. [Suspect]
     Active Substance: ACALABRUTINIB
     Indication: MANTLE CELL LYMPHOMA
     Route: 048
     Dates: start: 20180512, end: 20180513
  55. ACALABRUTINIB. [Suspect]
     Active Substance: ACALABRUTINIB
     Indication: MANTLE CELL LYMPHOMA
     Route: 048
     Dates: start: 20180711, end: 20180714
  56. ACALABRUTINIB. [Suspect]
     Active Substance: ACALABRUTINIB
     Indication: MANTLE CELL LYMPHOMA
     Route: 048
     Dates: start: 20180812, end: 20180905
  57. ACALABRUTINIB. [Suspect]
     Active Substance: ACALABRUTINIB
     Indication: MANTLE CELL LYMPHOMA
     Route: 048
     Dates: start: 20181123, end: 20181123
  58. ACALABRUTINIB. [Suspect]
     Active Substance: ACALABRUTINIB
     Indication: MANTLE CELL LYMPHOMA
     Route: 048
     Dates: start: 20181202, end: 20181202
  59. ACALABRUTINIB. [Suspect]
     Active Substance: ACALABRUTINIB
     Indication: MANTLE CELL LYMPHOMA
     Route: 048
     Dates: start: 20190104, end: 20190104
  60. ACALABRUTINIB. [Suspect]
     Active Substance: ACALABRUTINIB
     Indication: MANTLE CELL LYMPHOMA
     Route: 048
     Dates: start: 20190908, end: 20190908
  61. ACALABRUTINIB. [Suspect]
     Active Substance: ACALABRUTINIB
     Indication: MANTLE CELL LYMPHOMA
     Route: 048
     Dates: start: 20191016, end: 20191016
  62. ACALABRUTINIB. [Suspect]
     Active Substance: ACALABRUTINIB
     Indication: MANTLE CELL LYMPHOMA
     Route: 048
     Dates: start: 20191230, end: 20200215
  63. BENDAMUSTINE [Suspect]
     Active Substance: BENDAMUSTINE
     Indication: MANTLE CELL LYMPHOMA
     Dosage: 140.0MG/M2 ONCE/SINGLE ADMINISTRATION
     Route: 042
     Dates: start: 20180220, end: 20180220
  64. RITUXIMAB. [Suspect]
     Active Substance: RITUXIMAB
     Indication: MANTLE CELL LYMPHOMA
     Dosage: 600.0MG/M2 ONCE/SINGLE ADMINISTRATION
     Route: 042
     Dates: start: 20180619, end: 20180619
  65. OMNIC OCAS [Concomitant]
     Active Substance: TAMSULOSIN HYDROCHLORIDE
     Indication: BENIGN PROSTATIC HYPERPLASIA
     Route: 048
     Dates: start: 20170202
  66. ACETYLCYSTEINE. [Concomitant]
     Active Substance: ACETYLCYSTEINE
     Indication: UPPER RESPIRATORY TRACT INFECTION
     Route: 048
     Dates: start: 20191229
  67. ACALABRUTINIB. [Suspect]
     Active Substance: ACALABRUTINIB
     Indication: MANTLE CELL LYMPHOMA
     Route: 048
     Dates: start: 20180320, end: 20180415
  68. ACALABRUTINIB. [Suspect]
     Active Substance: ACALABRUTINIB
     Indication: MANTLE CELL LYMPHOMA
     Route: 048
     Dates: start: 20190105, end: 20190126
  69. ACALABRUTINIB. [Suspect]
     Active Substance: ACALABRUTINIB
     Indication: MANTLE CELL LYMPHOMA
     Route: 048
     Dates: start: 20190422, end: 20190422
  70. ACALABRUTINIB. [Suspect]
     Active Substance: ACALABRUTINIB
     Indication: MANTLE CELL LYMPHOMA
     Route: 048
     Dates: start: 20191001, end: 20191007
  71. BENDAMUSTINE [Suspect]
     Active Substance: BENDAMUSTINE
     Indication: MANTLE CELL LYMPHOMA
     Dosage: 140.0MG/M2 ONCE/SINGLE ADMINISTRATION
     Route: 042
     Dates: start: 20171129, end: 20171129
  72. BENDAMUSTINE [Suspect]
     Active Substance: BENDAMUSTINE
     Indication: MANTLE CELL LYMPHOMA
     Dosage: 140.0MG/M2 ONCE/SINGLE ADMINISTRATION
     Route: 042
     Dates: start: 20180321, end: 20180321
  73. RITUXIMAB. [Suspect]
     Active Substance: RITUXIMAB
     Indication: MANTLE CELL LYMPHOMA
     Dosage: 600.0MG/M2 ONCE/SINGLE ADMINISTRATION
     Route: 042
     Dates: start: 20191229, end: 20191229
  74. GAVISCON [Concomitant]
     Active Substance: ALUMINUM HYDROXIDE\MAGNESIUM CARBONATE
     Indication: GASTROOESOPHAGEAL REFLUX DISEASE
     Route: 048
     Dates: start: 20181010
  75. ACALABRUTINIB. [Suspect]
     Active Substance: ACALABRUTINIB
     Indication: MANTLE CELL LYMPHOMA
     Route: 048
     Dates: start: 20180715, end: 20180715
  76. ACALABRUTINIB. [Suspect]
     Active Substance: ACALABRUTINIB
     Indication: MANTLE CELL LYMPHOMA
     Route: 048
     Dates: start: 20180906, end: 20181006
  77. ACALABRUTINIB. [Suspect]
     Active Substance: ACALABRUTINIB
     Indication: MANTLE CELL LYMPHOMA
     Route: 048
     Dates: start: 20190602, end: 20190602
  78. ACALABRUTINIB. [Suspect]
     Active Substance: ACALABRUTINIB
     Indication: MANTLE CELL LYMPHOMA
     Route: 048
     Dates: start: 20190603, end: 20190615
  79. ACALABRUTINIB. [Suspect]
     Active Substance: ACALABRUTINIB
     Indication: MANTLE CELL LYMPHOMA
     Route: 048
     Dates: start: 20190829, end: 20190906
  80. ACALABRUTINIB. [Suspect]
     Active Substance: ACALABRUTINIB
     Indication: MANTLE CELL LYMPHOMA
     Route: 048
     Dates: start: 20190909, end: 20190916
  81. ACALABRUTINIB. [Suspect]
     Active Substance: ACALABRUTINIB
     Indication: MANTLE CELL LYMPHOMA
     Route: 048
     Dates: start: 20191015, end: 20191015
  82. ACALABRUTINIB. [Suspect]
     Active Substance: ACALABRUTINIB
     Indication: MANTLE CELL LYMPHOMA
     Route: 048
     Dates: start: 20191117, end: 20191204
  83. BENDAMUSTINE [Suspect]
     Active Substance: BENDAMUSTINE
     Indication: MANTLE CELL LYMPHOMA
     Dosage: 140.0MG/M2 ONCE/SINGLE ADMINISTRATION
     Route: 042
     Dates: start: 20180417, end: 20180417
  84. RITUXIMAB. [Suspect]
     Active Substance: RITUXIMAB
     Indication: MANTLE CELL LYMPHOMA
     Dosage: 600.0MG/M2 ONCE/SINGLE ADMINISTRATION
     Route: 042
     Dates: start: 20190602, end: 20190602
  85. ACALABRUTINIB. [Suspect]
     Active Substance: ACALABRUTINIB
     Indication: MANTLE CELL LYMPHOMA
     Route: 048
     Dates: start: 20180123, end: 20180213
  86. ACALABRUTINIB. [Suspect]
     Active Substance: ACALABRUTINIB
     Indication: MANTLE CELL LYMPHOMA
     Route: 048
     Dates: start: 20181009, end: 20181009
  87. ACALABRUTINIB. [Suspect]
     Active Substance: ACALABRUTINIB
     Indication: MANTLE CELL LYMPHOMA
     Route: 048
     Dates: start: 20190324, end: 20190421
  88. BENDAMUSTINE [Suspect]
     Active Substance: BENDAMUSTINE
     Indication: MANTLE CELL LYMPHOMA
     Dosage: 140.0MG/M2 ONCE/SINGLE ADMINISTRATION
     Route: 042
     Dates: start: 20171226, end: 20171226
  89. BENDAMUSTINE [Suspect]
     Active Substance: BENDAMUSTINE
     Indication: MANTLE CELL LYMPHOMA
     Dosage: 140.0MG/M2 ONCE/SINGLE ADMINISTRATION
     Route: 042
     Dates: start: 20180123, end: 20180123
  90. BENDAMUSTINE [Suspect]
     Active Substance: BENDAMUSTINE
     Indication: MANTLE CELL LYMPHOMA
     Dosage: 140.0MG/M2 ONCE/SINGLE ADMINISTRATION
     Route: 042
     Dates: start: 20180124, end: 20180124
  91. RITUXIMAB. [Suspect]
     Active Substance: RITUXIMAB
     Indication: MANTLE CELL LYMPHOMA
     Dosage: 600.0MG/M2 ONCE/SINGLE ADMINISTRATION
     Route: 042
     Dates: start: 20171128, end: 20171128
  92. RITUXIMAB. [Suspect]
     Active Substance: RITUXIMAB
     Indication: MANTLE CELL LYMPHOMA
     Dosage: 600.0MG/M2 ONCE/SINGLE ADMINISTRATION
     Route: 042
     Dates: start: 20180220, end: 20180220
  93. RITUXIMAB. [Suspect]
     Active Substance: RITUXIMAB
     Indication: MANTLE CELL LYMPHOMA
     Dosage: 600.0MG/M2 ONCE/SINGLE ADMINISTRATION
     Route: 042
     Dates: start: 20181009, end: 20181009
  94. RITUXIMAB. [Suspect]
     Active Substance: RITUXIMAB
     Indication: MANTLE CELL LYMPHOMA
     Dosage: 600.0MG/M2 ONCE/SINGLE ADMINISTRATION
     Route: 042
     Dates: start: 20181202, end: 20181202
  95. RITUXIMAB. [Suspect]
     Active Substance: RITUXIMAB
     Indication: MANTLE CELL LYMPHOMA
     Dosage: 600.0MG/M2 ONCE/SINGLE ADMINISTRATION
     Route: 042
     Dates: start: 20190714, end: 20190714
  96. HYDROCORTISONE. [Concomitant]
     Active Substance: HYDROCORTISONE
     Indication: PROPHYLAXIS
     Route: 042
     Dates: start: 20171128
  97. PALONOSETRON. [Concomitant]
     Active Substance: PALONOSETRON HYDROCHLORIDE
     Indication: PROPHYLAXIS
     Route: 042
     Dates: start: 20171128
  98. PARACETAMOL [Concomitant]
     Active Substance: ACETAMINOPHEN
     Indication: PROPHYLAXIS
     Route: 048
     Dates: start: 20171128
  99. PROMETHAZINE [Concomitant]
     Active Substance: PROMETHAZINE HYDROCHLORIDE
     Indication: PROPHYLAXIS
     Route: 048
     Dates: start: 20171128
  100. LUCRIN [Concomitant]
     Active Substance: LEUPROLIDE ACETATE
     Indication: PROSTATE CANCER
     Route: 058
     Dates: start: 20181118

REACTIONS (1)
  - Neuroendocrine carcinoma metastatic [Not Recovered/Not Resolved]

NARRATIVE: CASE EVENT DATE: 20200416
